FAERS Safety Report 8607490 (Version 6)
Quarter: 2012Q4

REPORT INFORMATION
  Report Type: Report from Study
  Country: FR (occurrence: FR)
  Receive Date: 20120611
  Receipt Date: 20121015
  Transmission Date: 20130627
  Serious: Yes (Death, Life-Threatening, Hospitalization, Other)
  Sender: FDA-Public Use
  Company Number: FR-MILLENNIUM PHARMACEUTICALS, INC.-2012-03924

PATIENT

DRUGS (29)
  1. VELCADE [Suspect]
     Indication: MULTIPLE MYELOMA
     Dosage: 2.1 mg, UNK
     Route: 058
     Dates: start: 20120522, end: 20120529
  2. JNJ-26481585 [Suspect]
     Indication: MULTIPLE MYELOMA
     Dosage: 12 mg, UNK
     Route: 048
     Dates: start: 20120521, end: 20120531
  3. DEXAMETHASONE [Suspect]
     Indication: MULTIPLE MYELOMA
     Dosage: 20 mg, UNK
     Route: 048
     Dates: start: 20120522, end: 20120529
  4. CEFTRIAXONE [Concomitant]
     Dosage: 2 g, qd
     Route: 042
     Dates: start: 20120601
  5. FENTANYL [Concomitant]
     Indication: PAIN PROPHYLAXIS
     Dosage: UNK, qd
     Route: 042
     Dates: start: 20120601
  6. FUROSEMIDE [Concomitant]
     Indication: PROPHYLAXIS
     Dosage: 40 mg, qd
     Route: 042
     Dates: start: 20120601
  7. ATRACURIUM [Concomitant]
     Indication: ANAESTHESIA
     Dosage: UNK, qd
     Route: 042
     Dates: start: 20120601
  8. PRIMPERAN                          /00041901/ [Concomitant]
     Indication: NAUSEA
     Dosage: 10 mg, UNK
     Route: 048
     Dates: start: 20120523, end: 20120528
  9. PRIMPERAN                          /00041901/ [Concomitant]
     Dosage: 10 UNK, UNK
     Route: 042
     Dates: start: 20120529, end: 20120529
  10. PRIMPERAN                          /00041901/ [Concomitant]
     Dosage: 10 mg, UNK
     Route: 042
     Dates: start: 20120521, end: 20120523
  11. KARDEGIC                           /00002703/ [Concomitant]
     Indication: PROPHYLAXIS
     Dosage: 75 mg, qd
     Route: 048
     Dates: start: 20100420, end: 20120531
  12. OXYGEN [Concomitant]
     Dosage: 15 L, UNK
     Route: 045
     Dates: start: 20120601
  13. NORADRENALINE                      /00127501/ [Concomitant]
     Dosage: UNK UNK, qd
     Route: 042
     Dates: start: 20120601
  14. BURINEX [Concomitant]
     Indication: PROPHYLAXIS
     Dosage: 5 mg, UNK
     Route: 042
     Dates: start: 20120601
  15. HYDROCORTISONE [Concomitant]
     Indication: PROPHYLAXIS
     Dosage: 250 mg, qd
     Route: 042
     Dates: start: 20120601
  16. MIDAZOLAM [Concomitant]
     Dosage: 10.5 UNK, UNK
     Route: 042
     Dates: start: 20120601
  17. ZOPHREN                            /00955301/ [Concomitant]
     Dosage: 8 mg, qd
     Route: 048
     Dates: start: 20120525, end: 20120525
  18. ZOPHREN                            /00955301/ [Concomitant]
     Dosage: 8 mg, bid
     Route: 042
     Dates: start: 20120529
  19. TOPALGIC                           /00599202/ [Concomitant]
     Dosage: 50 mg, qid
     Route: 042
     Dates: start: 20120529
  20. PERFALGAN [Concomitant]
     Dosage: 1 g, tid
     Route: 042
     Dates: start: 20120528, end: 20120529
  21. MORPHINE [Concomitant]
     Dosage: 10 mg, UNK
     Route: 042
     Dates: start: 20120528, end: 20120529
  22. TRANXENE [Concomitant]
     Indication: FEELING OF RELAXATION
     Dosage: 20 mg, qd
     Route: 042
     Dates: start: 20120528, end: 20120529
  23. ZOPHREN                            /00955301/ [Concomitant]
     Dosage: 8 mg, bid
     Route: 042
     Dates: start: 20120529
  24. ZELITREX                           /01269701/ [Concomitant]
     Indication: PROPHYLAXIS
     Dosage: 500 mg, bid
     Route: 048
     Dates: start: 20120521
  25. CRESTOR                            /01588601/ [Concomitant]
     Indication: HYPERCHOLESTEROLAEMIA
     Dosage: UNK, qd
     Route: 048
     Dates: end: 20120521
  26. IMPORTAL [Concomitant]
     Indication: CONSTIPATION
     Dosage: UNK, qd
     Route: 048
     Dates: end: 20120528
  27. TOPALGIC LP [Concomitant]
     Indication: BACK PAIN
     Dosage: 100 mg, bid
     Route: 048
     Dates: start: 20120515, end: 20120528
  28. TOPALGIC LP [Concomitant]
     Dosage: 50 mg, qid
     Route: 042
     Dates: start: 20120529
  29. OXYCONTIN [Concomitant]
     Indication: BACK PAIN
     Dosage: 10 mg, bid
     Route: 048
     Dates: start: 20120514, end: 20120515

REACTIONS (5)
  - Hypotension [Fatal]
  - Dyspnoea [Fatal]
  - Thrombocytopenia [Recovered/Resolved]
  - Electrocardiogram QT prolonged [Not Recovered/Not Resolved]
  - Back pain [Not Recovered/Not Resolved]
